FAERS Safety Report 6571418-6 (Version None)
Quarter: 2010Q1

REPORT INFORMATION
  Report Type: 
  Country: None (occurrence: None)
  Receive Date: 20100205
  Receipt Date: 20100126
  Transmission Date: 20100710
  Serious: Yes (Life-Threatening)
  Sender: FDA-Public Use
  Company Number: GB-PFIZER INC-2010010110

PATIENT
  Age: 70 Year
  Sex: Female
  Weight: 50 kg

DRUGS (13)
  1. DEPO-MEDROL [Suspect]
     Dosage: UNK
     Route: 014
     Dates: start: 20100115, end: 20100115
  2. ADCAL-D3 [Concomitant]
  3. ALENDRONIC ACID [Concomitant]
  4. ATENOLOL [Concomitant]
  5. BENDROFLUMETHIAZIDE [Concomitant]
  6. LIGHT LIQUID PARAFFIN [Concomitant]
  7. DERMOVATE [Concomitant]
  8. DESLORATADINE [Concomitant]
  9. DOMPERIDONE [Concomitant]
  10. EMULSIFYING OINTMENT [Concomitant]
  11. GAVISCON [Concomitant]
  12. HYDROXYZINE HYDROCHLORIDE [Concomitant]
  13. OMEPRAZOLE [Concomitant]

REACTIONS (1)
  - ANAPHYLACTIC SHOCK [None]
